FAERS Safety Report 15517697 (Version 1)
Quarter: 2018Q4

REPORT INFORMATION
  Report Type: Spontaneous
  Country: US (occurrence: US)
  Receive Date: 20181017
  Receipt Date: 20181017
  Transmission Date: 20190205
  Serious: Yes (Other)
  Sender: FDA-Public Use
  Company Number: US-AMGEN-USASP2018142846

PATIENT
  Age: 18 Month
  Sex: Female

DRUGS (1)
  1. NPLATE [Suspect]
     Active Substance: ROMIPLOSTIM
     Indication: IMMUNE THROMBOCYTOPENIC PURPURA
     Dosage: 5 MUG, UNK
     Route: 065
     Dates: start: 2017

REACTIONS (2)
  - Off label use [Unknown]
  - Developmental delay [Not Recovered/Not Resolved]
